FAERS Safety Report 6657957-8 (Version None)
Quarter: 2010Q1

REPORT INFORMATION
  Report Type: 
  Country: None (occurrence: None)
  Receive Date: 20100330
  Receipt Date: 20100319
  Transmission Date: 20100710
  Serious: Yes (Death)
  Sender: FDA-Public Use
  Company Number: JP-WYE-H11633909

PATIENT
  Sex: Female

DRUGS (2)
  1. ZOSYN [Suspect]
     Indication: DRUG USE FOR UNKNOWN INDICATION
     Dosage: UNKNOWN
     Route: 041
  2. ARBEKACIN [Suspect]
     Indication: DRUG USE FOR UNKNOWN INDICATION
     Dosage: UNKNOWN
     Route: 041

REACTIONS (2)
  - ANURIA [None]
  - RENAL FAILURE [None]
